FAERS Safety Report 5805602-3 (Version None)
Quarter: 2008Q3

REPORT INFORMATION
  Report Type: 
  Country: None (occurrence: None)
  Receive Date: 20080710
  Receipt Date: 20080627
  Transmission Date: 20090109
  Serious: Yes (Life-Threatening, Hospitalization, Other)
  Sender: FDA-Public Use
  Company Number: US-ELI_LILLY_AND_COMPANY-US200806001026

PATIENT
  Sex: Female

DRUGS (8)
  1. FORTEO [Suspect]
     Indication: OSTEOPOROSIS
     Dosage: UNK, UNK
     Dates: start: 20080201, end: 20080501
  2. EVISTA [Suspect]
  3. LISINOPRIL [Concomitant]
     Dosage: 2.5 MG, UNK
     Dates: start: 20080501, end: 20080605
  4. LISINOPRIL [Concomitant]
     Dosage: 2.5 MG, DAILY (1/D)
  5. PREVACID [Concomitant]
     Dosage: 30 MG, DAILY (1/D)
  6. CALCIUM [Concomitant]
     Dosage: 1000 MG, DAILY (1/D)
  7. PAXIL [Concomitant]
     Dosage: 10 MG, UNK
  8. VITAMINS NOS [Concomitant]
     Dosage: UNK, UNK

REACTIONS (14)
  - ACUTE MYOCARDIAL INFARCTION [None]
  - ANAEMIA [None]
  - CARDIAC ARREST [None]
  - CARDIAC VALVE DISEASE [None]
  - CORONARY ARTERY DISEASE [None]
  - ECCHYMOSIS [None]
  - EJECTION FRACTION DECREASED [None]
  - EMBOLISM [None]
  - HAEMATOMA [None]
  - HEADACHE [None]
  - ISCHAEMIC CARDIOMYOPATHY [None]
  - SHOCK [None]
  - URTICARIA [None]
  - VENTRICULAR FIBRILLATION [None]
